FAERS Safety Report 9185746 (Version 1)
Quarter: 2013Q1

REPORT INFORMATION
  Report Type: Spontaneous
  Country: US (occurrence: US)
  Receive Date: 20130325
  Receipt Date: 20130325
  Transmission Date: 20140127
  Serious: Yes (Other)
  Sender: FDA-Public Use
  Company Number: US-AMGEN-USASP2013017782

PATIENT
  Sex: Male

DRUGS (1)
  1. SENSIPAR [Suspect]
     Indication: HYPERPARATHYROIDISM SECONDARY
     Dosage: 30 MG, UNK

REACTIONS (6)
  - Parathyroidectomy [Unknown]
  - Abdominal distension [Unknown]
  - Blood parathyroid hormone abnormal [Unknown]
  - Eructation [Unknown]
  - Nausea [Unknown]
  - Vomiting [Unknown]
